FAERS Safety Report 7571714-X (Version None)
Quarter: 2011Q2

REPORT INFORMATION
  Report Type: 
  Country: None (occurrence: None)
  Receive Date: 20110624
  Receipt Date: 20110615
  Transmission Date: 20111010
  Serious: Yes (Other)
  Sender: FDA-Public Use
  Company Number: MY-ASTRAZENECA-2011SE36737

PATIENT
  Age: 62 Year
  Sex: Female

DRUGS (3)
  1. VALSARTAN [Concomitant]
     Indication: HYPERTENSION
  2. ANASTRAZOLE [Suspect]
     Route: 048
     Dates: start: 20080101
  3. SLEEPING PILLS [Concomitant]

REACTIONS (1)
  - MYASTHENIA GRAVIS [None]
